FAERS Safety Report 5850687-1 (Version None)
Quarter: 2008Q3

REPORT INFORMATION
  Report Type: 
  Country: None (occurrence: None)
  Receive Date: 20080818
  Receipt Date: 20080807
  Transmission Date: 20090109
  Serious: Yes (Other)
  Sender: FDA-Public Use
  Company Number: 100#03#2008-03983

PATIENT
  Age: 38 Year
  Sex: Male

DRUGS (3)
  1. ERYTHROMYCIN [Suspect]
     Indication: WOUND INFECTION
     Dosage: ORAL
     Route: 048
     Dates: start: 20080709, end: 20080711
  2. TETANUS ANTIGEN (CLOSTRIDIUM TETANI) [Suspect]
     Indication: WOUND INFECTION
     Dosage: INTRAMUSCULAR
     Route: 030
     Dates: start: 20080709, end: 20080709
  3. DICLOFENAC SODIUM [Concomitant]

REACTIONS (1)
  - HALLUCINATION, VISUAL [None]
